FAERS Safety Report 6846848-5 (Version None)
Quarter: 2010Q3

REPORT INFORMATION
  Report Type: 
  Country: None (occurrence: None)
  Receive Date: 20100712
  Receipt Date: 20100630
  Transmission Date: 20110219
  Serious: Yes (Disabling)
  Sender: FDA-Public Use
  Company Number: 2010AL003231

PATIENT
  Age: 68 Year
  Sex: Male

DRUGS (3)
  1. DICLOFENAC SODIUM [Suspect]
     Indication: POSTOPERATIVE HERNIA
     Dosage: 50 MG; PO
     Route: 048
     Dates: start: 20100201, end: 20100320
  2. TAMSULOSIN HCL [Suspect]
     Indication: POSTOPERATIVE HERNIA
     Dosage: 40 MCG; PO
     Route: 048
     Dates: start: 20091201, end: 20100406
  3. CETIRIZINE HCL [Concomitant]

REACTIONS (2)
  - MYALGIA [None]
  - POSTOPERATIVE HERNIA [None]
